FAERS Safety Report 15613352 (Version 1)
Quarter: 2018Q4

REPORT INFORMATION
  Report Type: Spontaneous
  Country: FR (occurrence: FR)
  Receive Date: 20181113
  Receipt Date: 20181113
  Transmission Date: 20190205
  Serious: Yes (Other)
  Sender: FDA-Public Use
  Company Number: FR-BAYER-2018-207761

PATIENT
  Age: 55 Year
  Sex: Male

DRUGS (3)
  1. STIVARGA [Suspect]
     Active Substance: REGORAFENIB
     Dosage: 120 MG, QD
  2. STIVARGA [Suspect]
     Active Substance: REGORAFENIB
     Dosage: 120 MG, QD
     Dates: start: 201706
  3. STIVARGA [Suspect]
     Active Substance: REGORAFENIB
     Dosage: 80 MG, QD

REACTIONS (5)
  - Palmar-plantar erythrodysaesthesia syndrome [None]
  - Pain [None]
  - Disease progression [None]
  - Hyperkeratosis [None]
  - Skin exfoliation [None]

NARRATIVE: CASE EVENT DATE: 201712
